FAERS Safety Report 8362335 (Version 2)
Quarter: 2015Q1

REPORT INFORMATION
  Report Type: Report from Study
  Country: US (occurrence: US)
  Receive Date: 20120130
  Receipt Date: 20150226
  Transmission Date: 20150721
  Serious: Yes (Death)
  Sender: FDA-Public Use
  Company Number: US-ROCHE-1034446

PATIENT
  Sex: Female
  Weight: 76.2 kg

DRUGS (24)
  1. ZOMETA [Concomitant]
     Active Substance: ZOLEDRONIC ACID
     Route: 042
  2. LIPITOR [Concomitant]
     Active Substance: ATORVASTATIN CALCIUM
     Route: 065
  3. OXYCODONE [Concomitant]
     Active Substance: OXYCODONE
     Dosage: BEFORE BEDTIME
     Route: 065
  4. TAXOL [Concomitant]
     Active Substance: PACLITAXEL
     Route: 065
     Dates: start: 200704
  5. NORMAL SALINE [Concomitant]
     Active Substance: SODIUM CHLORIDE
     Route: 042
  6. DOXIL [Concomitant]
     Active Substance: DOXORUBICIN HYDROCHLORIDE
     Route: 065
     Dates: start: 20071112
  7. AVASTIN [Suspect]
     Active Substance: BEVACIZUMAB
     Indication: BONE CANCER
     Dosage: SUBSEQUENT DOSES: 18/AUG/2008, 02/SEP/2008, 15/SEP/2008, 29/SEP/2008, 13/OCT/2008, 27/OCT/2008?10  M
     Route: 042
  8. XELODA [Suspect]
     Active Substance: CAPECITABINE
     Indication: BONE CANCER
     Route: 065
  9. FUROSEMIDE. [Concomitant]
     Active Substance: FUROSEMIDE
     Route: 065
  10. VITAMIN E [Concomitant]
     Active Substance: .ALPHA.-TOCOPHEROL
  11. VITAMIN B6 [Concomitant]
     Active Substance: PYRIDOXINE HYDROCHLORIDE
     Route: 065
  12. OXYCODONE [Concomitant]
     Active Substance: OXYCODONE
     Route: 048
  13. KYTRIL [Concomitant]
     Active Substance: GRANISETRON HYDROCHLORIDE
     Route: 040
  14. FASLODEX [Concomitant]
     Active Substance: FULVESTRANT
     Route: 030
  15. RANITIDINE [Concomitant]
     Active Substance: RANITIDINE\RANITIDINE HYDROCHLORIDE
     Route: 065
  16. FAMOTIDINE. [Concomitant]
     Active Substance: FAMOTIDINE
     Route: 040
  17. AVASTIN [Suspect]
     Active Substance: BEVACIZUMAB
     Indication: BREAST CANCER FEMALE
     Dosage: 50 MG/KG
     Route: 042
     Dates: start: 20080728
  18. ALOXI [Concomitant]
     Active Substance: PALONOSETRON HYDROCHLORIDE
     Route: 040
  19. ANZEMET [Concomitant]
     Active Substance: DOLASETRON MESYLATE
     Route: 040
  20. XELODA [Suspect]
     Active Substance: CAPECITABINE
     Indication: BREAST CANCER FEMALE
     Route: 065
     Dates: start: 20080728
  21. VITAMIN C [Concomitant]
     Active Substance: ASCORBIC ACID
  22. NEULASTA [Concomitant]
     Active Substance: PEGFILGRASTIM
     Route: 058
  23. CLONIDINE. [Concomitant]
     Active Substance: CLONIDINE
     Route: 065
  24. VITAMIN B6 [Concomitant]
     Active Substance: PYRIDOXINE HYDROCHLORIDE
     Route: 065

REACTIONS (5)
  - Palmar-plantar erythrodysaesthesia syndrome [Unknown]
  - Nausea [Unknown]
  - Abdominal pain [Recovering/Resolving]
  - Asthenia [Unknown]
  - Death [Fatal]
